FAERS Safety Report 6105055-4 (Version None)
Quarter: 2009Q1

REPORT INFORMATION
  Report Type: 
  Country: None (occurrence: None)
  Receive Date: 20090306
  Receipt Date: 20090203
  Transmission Date: 20090719
  Serious: No
  Sender: FDA-Public Use
  Company Number: US-BAYER-200912793NA

PATIENT
  Age: 48 Year
  Sex: Female

DRUGS (5)
  1. ANGELIQ [Suspect]
     Indication: MENOPAUSE
     Route: 048
     Dates: start: 20081230
  2. TOPAMAX [Concomitant]
     Dosage: UNIT DOSE: 200 MG
     Route: 048
  3. LORAZEPAM [Concomitant]
     Dosage: TOTAL DAILY DOSE: 0.25 MG  UNIT DOSE: 0.5 MG
     Route: 048
  4. LORAZEPAM [Concomitant]
     Dosage: TOTAL DAILY DOSE: 1.0 MG  UNIT DOSE: 0.5 MG
  5. ROZEREM [Concomitant]

REACTIONS (3)
  - FLUID RETENTION [None]
  - OEDEMA PERIPHERAL [None]
  - PAIN IN EXTREMITY [None]
